FAERS Safety Report 8605803-5 (Version None)
Quarter: 2012Q3

REPORT INFORMATION
  Report Type: 
  Country: None (occurrence: None)
  Receive Date: 20120820
  Receipt Date: 20120808
  Transmission Date: 20120928
  Serious: Yes (Congenital Anomaly)
  Sender: FDA-Public Use
  Company Number: US-GLAXOSMITHKLINE-A0643568A

PATIENT
  Sex: Male

DRUGS (3)
  1. PAXIL [Suspect]
     Indication: SOCIAL PHOBIA
     Dosage: 20MG PER DAY
     Route: 064
     Dates: start: 20030101, end: 20030101
  2. NO CONCURRENT MEDICATION [Concomitant]
  3. PAXIL CR [Suspect]
     Indication: SOCIAL PHOBIA
     Route: 048

REACTIONS (3)
  - FOETAL EXPOSURE DURING PREGNANCY [None]
  - TALIPES [None]
  - BREECH DELIVERY [None]
